FAERS Safety Report 24573739 (Version 4)
Quarter: 2025Q2

REPORT INFORMATION
  Report Type: Report from Study
  Country: US (occurrence: US)
  Receive Date: 20241103
  Receipt Date: 20250504
  Transmission Date: 20250716
  Serious: Yes (Hospitalization, Other)
  Sender: AIMMUNE
  Company Number: US-ZENPEP LLC-2024AIMT01359

PATIENT

DRUGS (2)
  1. ZENPEP [Suspect]
     Active Substance: PANCRELIPASE AMYLASE\PANCRELIPASE LIPASE\PANCRELIPASE PROTEASE
     Indication: Pancreatic failure
     Route: 048
  2. ZENPEP [Suspect]
     Active Substance: PANCRELIPASE AMYLASE\PANCRELIPASE LIPASE\PANCRELIPASE PROTEASE
     Route: 048

REACTIONS (10)
  - Infection [Unknown]
  - Pancreatitis chronic [Unknown]
  - Pancreas infection [Unknown]
  - Pancreatitis necrotising [Unknown]
  - Pancreatic atrophy [Unknown]
  - Blood glucose decreased [Unknown]
  - Lactose intolerance [Unknown]
  - Therapy change [Unknown]
  - Memory impairment [Unknown]
  - Abdominal pain upper [Unknown]
